FAERS Safety Report 18623501 (Version 6)
Quarter: 2021Q2

REPORT INFORMATION
  Report Type: Spontaneous
  Country: US (occurrence: US)
  Receive Date: 20201216
  Receipt Date: 20210429
  Transmission Date: 20210717
  Serious: No
  Sender: FDA-Public Use
  Company Number: US-GLAXOSMITHKLINE-US2020AMR245412

PATIENT
  Sex: Female

DRUGS (6)
  1. ZEJULA [Suspect]
     Active Substance: NIRAPARIB
     Dosage: 100 MG, QD
     Route: 048
  2. ZEJULA [Suspect]
     Active Substance: NIRAPARIB
     Indication: OVARIAN CANCER
     Dosage: 200 MG, QD
     Route: 048
     Dates: start: 20201124
  3. ZEJULA [Suspect]
     Active Substance: NIRAPARIB
     Dosage: 200 MG, QD
     Route: 048
  4. ZEJULA [Suspect]
     Active Substance: NIRAPARIB
     Dosage: 100 MG, QD
     Route: 048
     Dates: start: 202102
  5. ZEJULA [Suspect]
     Active Substance: NIRAPARIB
     Dosage: 100 MG, QD
     Route: 048
  6. COVID 19 VACCINE [Concomitant]
     Indication: COVID-19 PROPHYLAXIS
     Dosage: UNK

REACTIONS (14)
  - Nausea [Unknown]
  - Insomnia [Recovered/Resolved]
  - Agitation [Unknown]
  - Adverse drug reaction [Unknown]
  - Frustration tolerance decreased [Unknown]
  - Speech disorder [Recovering/Resolving]
  - Loss of personal independence in daily activities [Unknown]
  - Illness [Unknown]
  - Incoherent [Recovering/Resolving]
  - Gait disturbance [Recovering/Resolving]
  - Dysphemia [Recovering/Resolving]
  - Balance disorder [Unknown]
  - Constipation [Unknown]
  - Neurological symptom [Unknown]
